FAERS Safety Report 12947582 (Version 1)
Quarter: 2016Q4

REPORT INFORMATION
  Report Type: Spontaneous
  Country: MN (occurrence: MN)
  Receive Date: 20161116
  Receipt Date: 20161116
  Transmission Date: 20170207
  Serious: Yes (Hospitalization)
  Sender: FDA-Public Use
  Company Number: MN-ABBVIE-16P-109-1782508-00

PATIENT
  Age: 9 Month
  Sex: Female

DRUGS (1)
  1. VALPROIC ACID. [Suspect]
     Active Substance: VALPROIC ACID
     Indication: SEIZURE
     Route: 065

REACTIONS (6)
  - Speech disorder [Unknown]
  - Toxic encephalopathy [Unknown]
  - Epilepsy [Unknown]
  - Skin hypopigmentation [Unknown]
  - Drug ineffective [Unknown]
  - Psychomotor retardation [Unknown]
